FAERS Safety Report 7863860-8 (Version None)
Quarter: 2011Q4

REPORT INFORMATION
  Report Type: 
  Country: None (occurrence: None)
  Receive Date: 20111028
  Receipt Date: 20111020
  Transmission Date: 20120403
  Serious: No
  Sender: FDA-Public Use
  Company Number: US-BIOGENIDEC-2011BI029212

PATIENT
  Age: 20 Year
  Sex: Female

DRUGS (2)
  1. TYSABRI [Suspect]
     Indication: MULTIPLE SCLEROSIS
     Route: 042
     Dates: start: 20110429, end: 20110901
  2. TYSABRI [Suspect]
     Route: 042
     Dates: start: 20080208, end: 20080908

REACTIONS (1)
  - MULTIPLE SCLEROSIS RELAPSE [None]
